FAERS Safety Report 4821904-1 (Version None)
Quarter: 2005Q4

REPORT INFORMATION
  Report Type: 
  Country: None (occurrence: None)
  Receive Date: 20051107
  Receipt Date: 20050816
  Transmission Date: 20060501
  Serious: Yes (Other)
  Sender: FDA-Public Use
  Company Number: US-ROCHE-414287

PATIENT
  Age: 29 Year
  Sex: Female
  Weight: 52.2 kg

DRUGS (6)
  1. VALIUM [Suspect]
     Indication: DRUG USE FOR UNKNOWN INDICATION
     Route: 048
  2. VALIUM [Suspect]
     Route: 048
  3. TRANSDERM SCOP [Suspect]
     Indication: DIZZINESS
     Route: 062
     Dates: start: 20040923, end: 20041130
  4. TRANSDERM SCOP [Suspect]
     Dosage: DOSING REPORTED AS EVERY 72 HOURS.
     Route: 062
     Dates: end: 20041215
  5. NEXIUM [Concomitant]
     Indication: DRUG USE FOR UNKNOWN INDICATION
  6. ZELNORM [Concomitant]
     Indication: DRUG USE FOR UNKNOWN INDICATION

REACTIONS (2)
  - DRUG DEPENDENCE [None]
  - MOTION SICKNESS [None]
